FAERS Safety Report 15292980 (Version 2)
Quarter: 2018Q4

REPORT INFORMATION
  Report Type: Spontaneous
  Country: BE (occurrence: BE)
  Receive Date: 20180819
  Receipt Date: 20180823
  Transmission Date: 20190204
  Serious: Yes (Other)
  Sender: FDA-Public Use
  Company Number: BE-BAXTER-2018BAX021430

PATIENT
  Age: 42 Year
  Sex: Female

DRUGS (1)
  1. BICARBONATE DE SODIUM VIAFLO 1,4%, SOLUTION POUR PERFUSION [Suspect]
     Active Substance: SODIUM BICARBONATE
     Indication: PRODUCT USED FOR UNKNOWN INDICATION
     Dosage: 500 ML BAG
     Route: 042

REACTIONS (3)
  - Injection site necrosis [Not Recovered/Not Resolved]
  - Confusional state [Unknown]
  - Injection site ulcer [Not Recovered/Not Resolved]

NARRATIVE: CASE EVENT DATE: 201808
